FAERS Safety Report 8702258 (Version 5)
Quarter: 2013Q1

REPORT INFORMATION
  Report Type: Report from Study
  Country: GB (occurrence: GB)
  Receive Date: 20120803
  Receipt Date: 20130116
  Transmission Date: 20140127
  Serious: Yes (Hospitalization)
  Sender: FDA-Public Use
  Company Number: GB-BAXTER-2012BAX012851

PATIENT
  Sex: Male
  Weight: 66 kg

DRUGS (7)
  1. WILATE [Concomitant]
     Indication: VON WILLEBRAND^S DISEASE
     Dosage: NOT REPORTED
     Dates: start: 2009
  2. VON WILLEBRAND FACTOR_650 IU/VIAL_POWDER FOR SOLUTION FOR INFUSION_VIA [Suspect]
     Indication: VON WILLEBRAND^S DISEASE
     Route: 042
     Dates: start: 20120625, end: 20120625
  3. VON WILLEBRAND FACTOR_650 IU/VIAL_POWDER FOR SOLUTION FOR INFUSION_VIA [Suspect]
     Indication: VON WILLEBRAND^S DISEASE
     Route: 042
     Dates: start: 20120612, end: 20120612
  4. VON WILLEBRAND FACTOR_650 IU/VIAL_POWDER FOR SOLUTION FOR INFUSION_VIA [Suspect]
     Indication: HAEMARTHROSIS
     Dosage: TOTAL DOSE
     Route: 042
     Dates: start: 20120705, end: 20120705
  5. VON WILLEBRAND FACTOR_650 IU/VIAL_POWDER FOR SOLUTION FOR INFUSION_VIA [Suspect]
     Dosage: TOTAL DOSE
     Route: 042
     Dates: start: 20120713, end: 20120713
  6. VON WILLEBRAND FACTOR_650 IU/VIAL_POWDER FOR SOLUTION FOR INFUSION_VIA [Suspect]
     Dosage: TOTAL DOSE
     Route: 042
     Dates: start: 20120722, end: 20120722
  7. VON WILLEBRAND FACTOR_650 IU/VIAL_POWDER FOR SOLUTION FOR INFUSION_VIA [Suspect]
     Dosage: 6.0 ML TOTAL VOLUME INFUSED
     Route: 042
     Dates: start: 20120724, end: 20120724

REACTIONS (2)
  - Chest discomfort [Recovered/Resolved]
  - Heart rate increased [Recovered/Resolved]
